APPROVED DRUG PRODUCT: FOLIC ACID
Active Ingredient: FOLIC ACID
Strength: 1MG
Dosage Form/Route: TABLET;ORAL
Application: A040514 | Product #001
Applicant: JUBILANT CADISTA PHARMACEUTICALS INC
Approved: Jun 14, 2005 | RLD: No | RS: No | Type: DISCN